FAERS Safety Report 6112248-9 (Version None)
Quarter: 2009Q1

REPORT INFORMATION
  Report Type: 
  Country: None (occurrence: None)
  Receive Date: 20090310
  Receipt Date: 20090226
  Transmission Date: 20090719
  Serious: Yes (Hospitalization)
  Sender: FDA-Public Use
  Company Number: PAR_02866_2009

PATIENT
  Age: 61 Year
  Sex: Female
  Weight: 80 kg

DRUGS (4)
  1. IBUPROFEN [Suspect]
     Indication: NECK PAIN
     Dosage: (400 MG TID ORAL)
     Route: 048
     Dates: start: 20081110, end: 20081112
  2. AMLODIPINE [Concomitant]
  3. OMEBETA [Concomitant]
  4. RAMIPRIL [Concomitant]

REACTIONS (9)
  - GASTROINTESTINAL MUCOSAL DISORDER [None]
  - HAEMORRHAGIC ANAEMIA [None]
  - HELICOBACTER GASTRITIS [None]
  - HIATUS HERNIA [None]
  - MELAENA [None]
  - PAIN [None]
  - PROCEDURAL COMPLICATION [None]
  - RECTAL NEOPLASM [None]
  - TACHYCARDIA [None]
